FAERS Safety Report 12110129 (Version 1)
Quarter: 2016Q1

REPORT INFORMATION
  Report Type: Report from Study
  Country: US (occurrence: None)
  Receive Date: 20160224
  Receipt Date: 20160224
  Transmission Date: 20160526
  Serious: Yes (Death, Other)
  Sender: FDA-Public Use
  Company Number: US-MDT-ADR-2016-00104

PATIENT
  Age: 67 Year
  Sex: Female

DRUGS (2)
  1. DILAUDID [Suspect]
     Active Substance: HYDROMORPHONE HYDROCHLORIDE
     Indication: CANCER PAIN
     Dosage: 1.0994 MG/DAY
  2. COMPOUNDED BACLOFEN INTRATHECAL 150 MCG/ML [Suspect]
     Active Substance: BACLOFEN
     Indication: CANCER PAIN
     Dosage: 82.45 MCG/DAY

REACTIONS (2)
  - Adverse drug reaction [None]
  - Condition aggravated [None]
